FAERS Safety Report 14527424 (Version 2)
Quarter: 2018Q1

REPORT INFORMATION
  Report Type: Spontaneous
  Country: US (occurrence: US)
  Receive Date: 20180213
  Receipt Date: 20180326
  Transmission Date: 20180509
  Serious: No
  Sender: FDA-Public Use
  Company Number: US-009507513-1802USA003793

PATIENT
  Sex: Female
  Weight: 66.21 kg

DRUGS (1)
  1. NEXPLANON [Suspect]
     Active Substance: ETONOGESTREL
     Indication: CONTRACEPTION
     Dosage: 1 ROD, EVERY THREE YEARS
     Route: 059
     Dates: start: 20150505, end: 20180206

REACTIONS (2)
  - No adverse event [Unknown]
  - Device breakage [Recovered/Resolved]
